FAERS Safety Report 9780339 (Version 1)
Quarter: 2013Q4

REPORT INFORMATION
  Report Type: Not Available
  Country: US (occurrence: US)
  Receive Date: 20131224
  Receipt Date: 20131224
  Transmission Date: 20140711
  Serious: Yes (Other)
  Sender: FDA-Public Use
  Company Number: US-LUPIN PHARMACEUTICALS INC.-E2B_00001535

PATIENT
  Age: 44 Year
  Sex: Male
  Weight: 102.15 kg

DRUGS (5)
  1. LOSARTAN POTASSIUM TABLETS USP 50MG [Suspect]
     Indication: HYPERTENSION
     Dates: start: 20131029, end: 20131106
  2. METOPROLOL [Concomitant]
     Indication: HYPERTENSION
  3. ALPRAZOLAM [Concomitant]
     Indication: ANXIETY
  4. ASPIRIN [Concomitant]
     Indication: CARDIOVASCULAR EVENT PROPHYLAXIS
  5. LIPITOR [Concomitant]
     Indication: BLOOD CHOLESTEROL INCREASED

REACTIONS (20)
  - Hypotension [Unknown]
  - Dizziness [Recovered/Resolved]
  - Dysarthria [Recovered/Resolved]
  - Eyelid oedema [Not Recovered/Not Resolved]
  - Rash [Recovered/Resolved]
  - Abdominal pain [Recovered/Resolved]
  - Bladder pain [Recovered/Resolved]
  - Anxiety [Not Recovered/Not Resolved]
  - Confusional state [Recovered/Resolved]
  - Headache [Recovered/Resolved]
  - Yellow skin [Recovered/Resolved]
  - Faeces discoloured [Recovered/Resolved]
  - Dry skin [Recovered/Resolved]
  - Generalised erythema [Recovered/Resolved]
  - Melaena [Recovered/Resolved]
  - Pollakiuria [Not Recovered/Not Resolved]
  - Dark circles under eyes [Not Recovered/Not Resolved]
  - Rash [Not Recovered/Not Resolved]
  - Oropharyngeal pain [Not Recovered/Not Resolved]
  - Ocular icterus [Recovered/Resolved]
